FAERS Safety Report 5736815-7 (Version None)
Quarter: 2008Q2

REPORT INFORMATION
  Report Type: 
  Country: None (occurrence: None)
  Receive Date: 20080509
  Receipt Date: 20080429
  Transmission Date: 20081010
  Serious: Yes (Other)
  Sender: FDA-Public Use
  Company Number: VNL_01064_2008

PATIENT
  Sex: Female

DRUGS (1)
  1. APOKYN [Suspect]
     Indication: DRUG USE FOR UNKNOWN INDICATION
     Dosage: (0.4 ML 2 TO 3 TIMES PER DAY SUBCUTANEOUS)
     Route: 058
     Dates: start: 20080327

REACTIONS (4)
  - ABDOMINAL MASS [None]
  - HEPATIC NEOPLASM MALIGNANT [None]
  - INJECTION SITE BRUISING [None]
  - INJECTION SITE SWELLING [None]
